FAERS Safety Report 13864553 (Version 4)
Quarter: 2018Q2

REPORT INFORMATION
  Report Type: Spontaneous
  Country: JP (occurrence: JP)
  Receive Date: 20170814
  Receipt Date: 20180606
  Transmission Date: 20180711
  Serious: Yes (Hospitalization)
  Sender: FDA-Public Use
  Company Number: JP-ACTELION-A-CH2017-157634

PATIENT
  Age: 33 Year
  Sex: Female

DRUGS (9)
  1. CARELOAD [Concomitant]
     Active Substance: BERAPROST SODIUM
  2. EPOPROSTENOL ACT [Concomitant]
     Active Substance: EPOPROSTENOL
     Indication: PULMONARY ARTERIAL HYPERTENSION
     Route: 042
  3. WARFARIN [Concomitant]
     Active Substance: WARFARIN
  4. ADCIRCA [Concomitant]
     Active Substance: TADALAFIL
  5. OXYGEN. [Concomitant]
     Active Substance: OXYGEN
  6. OPSUMIT [Suspect]
     Active Substance: MACITENTAN
     Indication: PULMONARY ARTERIAL HYPERTENSION
     Dosage: 350 MG, QD
     Route: 048
     Dates: start: 20170730, end: 20170730
  7. REVATIO [Suspect]
     Active Substance: SILDENAFIL CITRATE
     Indication: PULMONARY ARTERIAL HYPERTENSION
     Dosage: 60 MG, QD
     Route: 048
     Dates: start: 20160128, end: 20161108
  8. LASIX [Concomitant]
     Active Substance: FUROSEMIDE
  9. OPSUMIT [Suspect]
     Active Substance: MACITENTAN
     Dosage: 10 MG, QD
     Route: 048
     Dates: start: 20160128

REACTIONS (5)
  - Gastric lavage [Unknown]
  - Gastrointestinal tube insertion [Unknown]
  - Suicide attempt [Recovered/Resolved]
  - Flushing [Recovered/Resolved]
  - Overdose [Recovered/Resolved]

NARRATIVE: CASE EVENT DATE: 20170730
